FAERS Safety Report 10206536 (Version 15)
Quarter: 2017Q3

REPORT INFORMATION
  Report Type: Report from Study
  Country: MX (occurrence: MX)
  Receive Date: 20140530
  Receipt Date: 20170724
  Transmission Date: 20171127
  Serious: Yes (Disabling, Other)
  Sender: FDA-Public Use
  Company Number: MX-ROCHE-1408951

PATIENT
  Age: 47 Year
  Sex: Female
  Weight: 68 kg

DRUGS (6)
  1. GELATIN [Concomitant]
     Active Substance: GELATIN
     Indication: PRODUCT USED FOR UNKNOWN INDICATION
     Route: 048
     Dates: start: 20140519
  2. OMEGA 9 [Concomitant]
     Indication: PRODUCT USED FOR UNKNOWN INDICATION
     Route: 048
     Dates: start: 201301
  3. ROACTEMRA [Suspect]
     Active Substance: TOCILIZUMAB
     Route: 042
     Dates: start: 20150108
  4. OMEGA 3 [Concomitant]
     Active Substance: OMEGA-3 FATTY ACIDS
     Indication: PRODUCT USED FOR UNKNOWN INDICATION
     Route: 048
     Dates: start: 201301
  5. ROACTEMRA [Suspect]
     Active Substance: TOCILIZUMAB
     Indication: RHEUMATOID ARTHRITIS
     Dosage: LAST INFUSION: 23/MAY/2014
     Route: 042
     Dates: start: 20130101
  6. ROACTEMRA [Suspect]
     Active Substance: TOCILIZUMAB
     Route: 042
     Dates: start: 201610

REACTIONS (34)
  - Weight increased [Unknown]
  - Nausea [Recovered/Resolved]
  - Liver function test abnormal [Recovering/Resolving]
  - Food craving [Unknown]
  - Mood altered [Recovered/Resolved]
  - Conjunctivitis [Not Recovered/Not Resolved]
  - Anxiety [Unknown]
  - Feeling guilty [Unknown]
  - Pyrexia [Recovered/Resolved]
  - Body temperature increased [Recovered/Resolved]
  - Euphoric mood [Unknown]
  - Feeling abnormal [Unknown]
  - Stress [Unknown]
  - Yellow skin [Recovered/Resolved]
  - Malaise [Recovered/Resolved]
  - Arthralgia [Recovered/Resolved]
  - Influenza [Not Recovered/Not Resolved]
  - Vomiting [Recovered/Resolved]
  - Amenorrhoea [Recovered/Resolved]
  - Erectile dysfunction [Unknown]
  - Pyrexia [Recovered/Resolved]
  - Limb discomfort [Unknown]
  - Respiratory tract congestion [Not Recovered/Not Resolved]
  - Hyperhidrosis [Recovered/Resolved]
  - Gastritis [Recovered/Resolved]
  - Depressed mood [Unknown]
  - Obsessive-compulsive disorder [Unknown]
  - Feeling of despair [Unknown]
  - Feeling cold [Recovered/Resolved]
  - Dizziness [Recovered/Resolved]
  - Hepatic pain [Recovering/Resolving]
  - Weight increased [Recovered/Resolved]
  - Disease recurrence [Not Recovered/Not Resolved]
  - Toothache [Not Recovered/Not Resolved]

NARRATIVE: CASE EVENT DATE: 201301
